FAERS Safety Report 16802646 (Version 6)
Quarter: 2020Q4

REPORT INFORMATION
  Report Type: Other
  Country: US (occurrence: US)
  Receive Date: 20190912
  Receipt Date: 20201123
  Transmission Date: 20210113
  Serious: Yes (Hospitalization, Other)
  Sender: FDA-Public Use
  Company Number: US-ROCHE-2399274

PATIENT
  Sex: Female
  Weight: 72.64 kg

DRUGS (8)
  1. ASPIRIN. [Concomitant]
     Active Substance: ASPIRIN
     Indication: ARTHRALGIA
  2. OCREVUS [Suspect]
     Active Substance: OCRELIZUMAB
     Indication: RELAPSING MULTIPLE SCLEROSIS
     Route: 042
     Dates: start: 201906
  3. TYLENOL [Concomitant]
     Active Substance: ACETAMINOPHEN
     Indication: ARTHRALGIA
     Route: 048
     Dates: start: 2019
  4. OCREVUS [Suspect]
     Active Substance: OCRELIZUMAB
     Indication: PRIMARY PROGRESSIVE MULTIPLE SCLEROSIS
     Route: 042
     Dates: start: 20181207
  5. VOLTAREN [Concomitant]
     Active Substance: DICLOFENAC SODIUM
     Route: 062
  6. PRAMIPEXOLE. [Concomitant]
     Active Substance: PRAMIPEXOLE
     Indication: RESTLESS LEGS SYNDROME
     Dosage: TAKES 1 AT BEDTIME ; AS NEEDED 3 HOURS BEFORE REALLY PAINFUL ;ONGOING: YES
     Route: 048
     Dates: start: 201903
  7. OCREVUS [Suspect]
     Active Substance: OCRELIZUMAB
     Indication: SECONDARY PROGRESSIVE MULTIPLE SCLEROSIS
     Route: 042
     Dates: start: 20181207
  8. GABAPENTIN. [Concomitant]
     Active Substance: GABAPENTIN
     Indication: RESTLESS LEGS SYNDROME

REACTIONS (15)
  - Toe amputation [Not Recovered/Not Resolved]
  - Infection [Recovered/Resolved]
  - Basal cell carcinoma [Recovered/Resolved]
  - Varicophlebitis [Not Recovered/Not Resolved]
  - Tremor [Not Recovered/Not Resolved]
  - Malignant melanoma [Recovered/Resolved]
  - Ligament injury [Recovered/Resolved]
  - Impaired healing [Not Recovered/Not Resolved]
  - Skin cancer [Recovering/Resolving]
  - Arthritis [Not Recovered/Not Resolved]
  - Skin ulcer [Not Recovered/Not Resolved]
  - Varicose vein ruptured [Not Recovered/Not Resolved]
  - Localised infection [Recovering/Resolving]
  - Eye disorder [Unknown]
  - Wound infection [Recovering/Resolving]

NARRATIVE: CASE EVENT DATE: 2019
